FAERS Safety Report 5901352-3 (Version None)
Quarter: 2008Q3

REPORT INFORMATION
  Report Type: 
  Country: None (occurrence: None)
  Receive Date: 20080929
  Receipt Date: 20080918
  Transmission Date: 20090109
  Serious: Yes (Other)
  Sender: FDA-Public Use
  Company Number: US-AMGEN-US308747

PATIENT
  Age: 53 Year
  Sex: Male

DRUGS (4)
  1. PROCRIT [Suspect]
     Indication: ANAEMIA
     Route: 065
     Dates: start: 20070101
  2. CELLCEPT [Suspect]
  3. INTERFERON [Concomitant]
  4. RIBAVIRIN [Concomitant]

REACTIONS (1)
  - APLASIA PURE RED CELL [None]
